FAERS Safety Report 9816479 (Version 1)
Quarter: 2014Q1

REPORT INFORMATION
  Report Type: Spontaneous
  Country: US (occurrence: US)
  Receive Date: 20140114
  Receipt Date: 20140114
  Transmission Date: 20141002
  Serious: Yes (Death)
  Sender: FDA-Public Use
  Company Number: US-PFIZER INC-2014007211

PATIENT
  Age: 42 Year
  Sex: Female

DRUGS (7)
  1. LIDOCAINE HCL [Suspect]
     Dosage: UNK
  2. TRAMADOL [Suspect]
     Dosage: UNK
  3. CITALOPRAM [Suspect]
     Dosage: UNK
  4. METHAMPHETAMINE [Suspect]
     Dosage: UNK
  5. HYDROMORPHONE [Suspect]
     Dosage: UNK
  6. ACETAMINOPHEN/HYDROCODONE [Suspect]
     Dosage: UNK
  7. PENTAZOCINE [Suspect]
     Dosage: UNK

REACTIONS (1)
  - Drug abuse [Fatal]
